FAERS Safety Report 7331697-4 (Version None)
Quarter: 2011Q1

REPORT INFORMATION
  Report Type: 
  Country: None (occurrence: None)
  Receive Date: 20110224
  Receipt Date: 20110217
  Transmission Date: 20110831
  Serious: Yes (Life-Threatening, Hospitalization, Other)
  Sender: FDA-Public Use
  Company Number: 2011SP005718

PATIENT
  Age: 17 Year
  Sex: Female
  Weight: 56 kg

DRUGS (1)
  1. MERCILON (DESOGESTREL/ETHINYLESTRADIOL /00570801/) [Suspect]
     Indication: CONTRACEPTION

REACTIONS (8)
  - PERICARDIAL EFFUSION [None]
  - HEART RATE INCREASED [None]
  - CIRCULATORY COLLAPSE [None]
  - PULMONARY EMBOLISM [None]
  - NAUSEA [None]
  - POSTPERICARDIOTOMY SYNDROME [None]
  - INFLAMMATION [None]
  - PROCEDURAL COMPLICATION [None]
